FAERS Safety Report 20890274 (Version 2)
Quarter: 2022Q2

REPORT INFORMATION
  Report Type: Report from Study
  Country: US (occurrence: US)
  Receive Date: 20220530
  Receipt Date: 20220620
  Transmission Date: 20220721
  Serious: Yes (Hospitalization)
  Sender: FDA-Public Use
  Company Number: US-NOVARTISPH-NVSC2022US121009

PATIENT
  Age: 74 Year
  Sex: Male
  Weight: 63.492 kg

DRUGS (3)
  1. TABRECTA [Suspect]
     Active Substance: CAPMATINIB
     Indication: Lung carcinoma cell type unspecified stage 0
     Dosage: 200 MG, BID
     Route: 048
     Dates: start: 20220501
  2. TABRECTA [Suspect]
     Active Substance: CAPMATINIB
     Dosage: 400 MG, BID
     Route: 048
     Dates: start: 20220513
  3. TABRECTA [Suspect]
     Active Substance: CAPMATINIB
     Dosage: UNK (LESS THAN 2 WEEKS)
     Route: 048

REACTIONS (4)
  - Colitis [Recovering/Resolving]
  - Abdominal pain upper [Recovering/Resolving]
  - Nausea [Unknown]
  - Vomiting [Unknown]

NARRATIVE: CASE EVENT DATE: 20220515
